FAERS Safety Report 14127847 (Version 2)
Quarter: 2017Q4

REPORT INFORMATION
  Report Type: Spontaneous
  Country: US (occurrence: US)
  Receive Date: 20171026
  Receipt Date: 20171212
  Transmission Date: 20180321
  Serious: No
  Sender: FDA-Public Use
  Company Number: US-PFIZER INC-2017458607

PATIENT
  Age: 56 Year
  Sex: Female

DRUGS (1)
  1. XELJANZ [Suspect]
     Active Substance: TOFACITINIB CITRATE
     Dosage: 5 MG, UNK
     Dates: start: 201312

REACTIONS (5)
  - Urinary tract infection [Unknown]
  - Ear discomfort [Unknown]
  - Cough [Unknown]
  - Malaise [Unknown]
  - Nasal congestion [Unknown]
